FAERS Safety Report 17033064 (Version 6)
Quarter: 2020Q3

REPORT INFORMATION
  Report Type: Report from Study
  Country: None (occurrence: US)
  Receive Date: 20191114
  Receipt Date: 20200929
  Transmission Date: 20201102
  Serious: Yes (Hospitalization, Other)
  Sender: FDA-Public Use
  Company Number: US-ABBVIE-19P-163-2994939-00

PATIENT
  Age: 79 Year
  Sex: Male
  Weight: 54.98 kg

DRUGS (16)
  1. VENETOCLAX. [Suspect]
     Active Substance: VENETOCLAX
     Route: 048
     Dates: start: 20190920, end: 20190920
  2. LOPERAMIDE [Concomitant]
     Active Substance: LOPERAMIDE
     Indication: PROPHYLAXIS AGAINST DIARRHOEA
     Dosage: EVERY 4 HOURS AS NEEDED
     Route: 048
     Dates: start: 20191029
  3. VENETOCLAX. [Suspect]
     Active Substance: VENETOCLAX
     Route: 048
     Dates: start: 20190921, end: 20190921
  4. ALVOCIDIB [Suspect]
     Active Substance: ALVOCIDIB
     Dosage: DOSE: 22.5 MG/M2 + 45 MG/M2; ON DAYS 1?3 OF A 28 DAY CYCLE
     Route: 042
     Dates: start: 20190919, end: 20190919
  5. METFORMIN [Concomitant]
     Active Substance: METFORMIN HYDROCHLORIDE
     Route: 048
     Dates: start: 20191108
  6. AMLODIPINE [Concomitant]
     Active Substance: AMLODIPINE BESYLATE
     Indication: HYPERTENSION
     Route: 048
     Dates: start: 20191024
  7. VENETOCLAX. [Suspect]
     Active Substance: VENETOCLAX
     Route: 048
     Dates: start: 20190919, end: 20190919
  8. METFORMIN [Concomitant]
     Active Substance: METFORMIN HYDROCHLORIDE
     Route: 048
     Dates: start: 20191030, end: 20191105
  9. VENETOCLAX. [Suspect]
     Active Substance: VENETOCLAX
     Route: 048
     Dates: start: 20191204
  10. ALVOCIDIB [Suspect]
     Active Substance: ALVOCIDIB
     Dosage: DOSE: 30 MG/M2 + 60 MG/M2; ON DAYS 1?3 OF A 28 DAY CYCLE
     Route: 042
     Dates: start: 20191204
  11. METFORMIN [Concomitant]
     Active Substance: METFORMIN HYDROCHLORIDE
     Indication: DIABETES MELLITUS
     Route: 048
     Dates: start: 20191003, end: 20191021
  12. VENETOCLAX. [Suspect]
     Active Substance: VENETOCLAX
     Indication: ACUTE MYELOID LEUKAEMIA REFRACTORY
     Route: 048
     Dates: start: 20190918, end: 20190918
  13. ALVOCIDIB [Suspect]
     Active Substance: ALVOCIDIB
     Indication: ACUTE MYELOID LEUKAEMIA RECURRENT
     Dosage: DOSE: 15 MG/M2 + 30 MG/M2; ON DAYS 1?3 OF A 28 DAY CYCLE
     Route: 042
     Dates: start: 20190918, end: 20190918
  14. ALVOCIDIB [Suspect]
     Active Substance: ALVOCIDIB
     Dosage: DOSE: 30 MG/M2 + 60 MG/M2; ON DAYS 1?3 OF A 28 DAY CYCLE
     Route: 042
     Dates: start: 20190920, end: 20191024
  15. TRAMSULOSIN [Concomitant]
     Indication: BENIGN PROSTATIC HYPERPLASIA
     Route: 048
     Dates: start: 20191030
  16. VENETOCLAX. [Suspect]
     Active Substance: VENETOCLAX
     Route: 048
     Dates: start: 20191022, end: 20191103

REACTIONS (1)
  - Abdominal abscess [Recovered/Resolved]

NARRATIVE: CASE EVENT DATE: 20191104
